FAERS Safety Report 7246660-1 (Version None)
Quarter: 2011Q1

REPORT INFORMATION
  Report Type: 
  Country: None (occurrence: None)
  Receive Date: 20110127
  Receipt Date: 20110113
  Transmission Date: 20110831
  Serious: No
  Sender: FDA-Public Use
  Company Number: US-BIOGENIDEC-2011BI002746

PATIENT
  Age: 59 Year
  Sex: Male

DRUGS (2)
  1. TYSABRI [Suspect]
     Route: 042
     Dates: start: 20091008, end: 20100128
  2. TYSABRI [Suspect]
     Indication: MULTIPLE SCLEROSIS
     Route: 042
     Dates: start: 20100805

REACTIONS (2)
  - VEIN DISORDER [None]
  - PULSE PRESSURE INCREASED [None]
